FAERS Safety Report 5055159-2 (Version None)
Quarter: 2006Q3

REPORT INFORMATION
  Report Type: 
  Country: None (occurrence: None)
  Receive Date: 20060714
  Receipt Date: 20060704
  Transmission Date: 20061208
  Serious: Yes (Life-Threatening, Hospitalization)
  Sender: FDA-Public Use
  Company Number: 111345ISR

PATIENT
  Age: 43 Year
  Sex: Male

DRUGS (2)
  1. CISPLATIN [Suspect]
     Indication: NASOPHARYNGEAL CANCER
     Dosage: 100 MG/M2
     Dates: start: 20050501, end: 20050501
  2. DEXAMETHASONE TAB [Suspect]
     Indication: NAUSEA
     Dosage: 8 MILLIGRAM ORAL
     Route: 048
     Dates: start: 20050501

REACTIONS (17)
  - ASTHENIA [None]
  - CONFUSIONAL STATE [None]
  - CYANOSIS [None]
  - DEHYDRATION [None]
  - DIABETES MELLITUS INSULIN-DEPENDENT [None]
  - DIABETIC HYPEROSMOLAR COMA [None]
  - DIABETIC KETOACIDOSIS [None]
  - DIABETIC KETOACIDOTIC HYPERGLYCAEMIC COMA [None]
  - DISORIENTATION [None]
  - GENERAL PHYSICAL HEALTH DETERIORATION [None]
  - HALLUCINATION [None]
  - ILIAC ARTERY OCCLUSION [None]
  - MUSCULOSKELETAL STIFFNESS [None]
  - MYALGIA [None]
  - NEOPLASM PROGRESSION [None]
  - SPEECH DISORDER [None]
  - URINARY INCONTINENCE [None]
